FAERS Safety Report 20851168 (Version 2)
Quarter: 2022Q4

REPORT INFORMATION
  Report Type: Spontaneous
  Country: US (occurrence: US)
  Receive Date: 20220519
  Receipt Date: 20221003
  Transmission Date: 20230113
  Serious: Yes (Death, Other)
  Sender: FDA-Public Use
  Company Number: US-SA-SAC20220518001039

PATIENT
  Age: 61 Year
  Sex: Male

DRUGS (1)
  1. ZANTAC [Suspect]
     Active Substance: RANITIDINE HYDROCHLORIDE
     Indication: Dyspepsia
     Dosage: FREQ-OTHER
     Dates: start: 197201, end: 201811

REACTIONS (2)
  - Colorectal cancer stage IV [Fatal]
  - Prostate cancer [Fatal]

NARRATIVE: CASE EVENT DATE: 20160101
